FAERS Safety Report 8204581-1 (Version None)
Quarter: 2012Q1

REPORT INFORMATION
  Report Type: 
  Country: None (occurrence: None)
  Receive Date: 20120313
  Receipt Date: 20120306
  Transmission Date: 20120608
  Serious: Yes (Other)
  Sender: FDA-Public Use
  Company Number: BR-PFIZER INC-2012028609

PATIENT
  Age: 59 Year
  Sex: Female
  Weight: 67.1 kg

DRUGS (2)
  1. AROMASIN [Suspect]
     Indication: BREAST NEOPLASM
     Dosage: 25 MG, 1X/DAY
     Route: 048
     Dates: start: 20111101, end: 20111201
  2. CRESTOR [Concomitant]
     Indication: BLOOD CHOLESTEROL ABNORMAL
     Dosage: UNK
     Dates: start: 20100701

REACTIONS (3)
  - LARYNGITIS [None]
  - DYSPHONIA [None]
  - INCREASED UPPER AIRWAY SECRETION [None]
